FAERS Safety Report 11294749 (Version 1)
Quarter: 2015Q3

REPORT INFORMATION
  Report Type: Spontaneous
  Country: US (occurrence: None)
  Receive Date: 20150722
  Receipt Date: 20150722
  Transmission Date: 20151125
  Serious: No
  Sender: FDA-Public Use
  Company Number: None

PATIENT
  Age: 70 Year
  Sex: Male
  Weight: 90.1 kg

DRUGS (1)
  1. INTRON A [Suspect]
     Active Substance: INTERFERON ALFA-2B
     Indication: MALIGNANT MELANOMA
     Dosage: 2ML MWF SUBCUTANEOUSLY
     Route: 058
     Dates: start: 20150526, end: 20150623

REACTIONS (2)
  - Injection site necrosis [None]
  - Injection site ulcer [None]

NARRATIVE: CASE EVENT DATE: 20150619
